FAERS Safety Report 11748671 (Version 1)
Quarter: 2015Q4

REPORT INFORMATION
  Report Type: Spontaneous
  Country: US (occurrence: US)
  Receive Date: 20151117
  Receipt Date: 20151117
  Transmission Date: 20160304
  Serious: Yes (Other)
  Sender: FDA-Public Use
  Company Number: US-MYLANLABS-2015M1039963

PATIENT

DRUGS (8)
  1. LEVOMEFOLIC ACID [Concomitant]
     Indication: MAJOR DEPRESSION
     Route: 065
  2. MIRTAZAPINE. [Concomitant]
     Active Substance: MIRTAZAPINE
     Indication: MAJOR DEPRESSION
     Route: 065
  3. PREGABALIN. [Concomitant]
     Active Substance: PREGABALIN
     Indication: MAJOR DEPRESSION
     Route: 065
  4. VENLAFAXINE [Concomitant]
     Active Substance: VENLAFAXINE HYDROCHLORIDE
     Indication: MAJOR DEPRESSION
     Route: 065
  5. NORTRIPTYLINE [Concomitant]
     Active Substance: NORTRIPTYLINE
     Indication: MAJOR DEPRESSION
     Route: 065
  6. METHYLPHENIDATE. [Concomitant]
     Active Substance: METHYLPHENIDATE
     Indication: MAJOR DEPRESSION
     Route: 065
  7. KETAMINE [Suspect]
     Active Substance: KETAMINE
     Indication: MAJOR DEPRESSION
     Route: 050
     Dates: start: 201206, end: 201207
  8. TRANYLCYPROMINE [Concomitant]
     Active Substance: TRANYLCYPROMINE
     Indication: MAJOR DEPRESSION
     Route: 065

REACTIONS (3)
  - Major depression [Unknown]
  - Off label use [Unknown]
  - No adverse event [Recovered/Resolved]
